FAERS Safety Report 4323745-0 (Version None)
Quarter: 2004Q1

REPORT INFORMATION
  Report Type: 
  Country: None (occurrence: None)
  Receive Date: 20040323
  Receipt Date: 20040310
  Transmission Date: 20041129
  Serious: Yes (Death)
  Sender: FDA-Public Use
  Company Number: JP-JNJFOC-20031202796

PATIENT
  Age: 24 Year
  Sex: Male

DRUGS (7)
  1. RISPERDAL [Suspect]
     Indication: SCHIZOPHRENIA
     Dosage: 2 MG, IN 1 DAY, ORAL; 6 MG, IN 1 DAY, ORAL
     Route: 048
     Dates: start: 20030816, end: 20030907
  2. RISPERDAL [Suspect]
     Indication: SCHIZOPHRENIA
     Dosage: 2 MG, IN 1 DAY, ORAL; 6 MG, IN 1 DAY, ORAL
     Route: 048
     Dates: start: 20030908, end: 20031107
  3. BROTIZOLAM (BROTIZOLAM) [Concomitant]
  4. TRIHEXYPHENIDYL HCL [Concomitant]
  5. FLUNITRAZEPAM (FLUNITRAZEPAM) [Concomitant]
  6. LEVOMEPROMAZINE MALEATE (LEVOMEPROMAZINE MALEATE) [Concomitant]
  7. LITHIUM CARBONATE [Concomitant]

REACTIONS (9)
  - COMPLETED SUICIDE [None]
  - FOREIGN BODY ASPIRATION [None]
  - INJURY ASPHYXIATION [None]
  - MENTAL IMPAIRMENT [None]
  - POLYDIPSIA [None]
  - PULMONARY OEDEMA [None]
  - VOMITING [None]
  - WATER INTOXICATION [None]
  - WEIGHT INCREASED [None]
